FAERS Safety Report 22294134 (Version 8)
Quarter: 2024Q2

REPORT INFORMATION
  Report Type: Spontaneous
  Country: US (occurrence: US)
  Receive Date: 20230508
  Receipt Date: 20240422
  Transmission Date: 20240716
  Serious: No
  Sender: FDA-Public Use
  Company Number: US-PFIZER INC-PV202300031342

PATIENT
  Age: 65 Year
  Sex: Female
  Weight: 69.841 kg

DRUGS (2)
  1. ESTRING [Suspect]
     Active Substance: ESTRADIOL
     Indication: Menopause
     Dosage: AS DIRECTED EVERY 90 DAYS
  2. ESTRING [Suspect]
     Active Substance: ESTRADIOL
     Indication: Atrophic vulvovaginitis
     Dosage: 7.5 MCG/24 HR VAGINAL RING, 1 RING EVERY 90 DAYS
     Route: 067

REACTIONS (1)
  - Intentional device use issue [Unknown]
